FAERS Safety Report 14928417 (Version 1)
Quarter: 2018Q2

REPORT INFORMATION
  Report Type: Spontaneous
  Country: US (occurrence: US)
  Receive Date: 20180504
  Receipt Date: 20180504
  Transmission Date: 20180711
  Serious: No
  Sender: FDA-Public Use
  Company Number: None

PATIENT
  Age: 39 Year
  Sex: Female

DRUGS (1)
  1. IBRANCE [Suspect]
     Active Substance: PALBOCICLIB
     Dosage: 125MG QD FOR 21 DAYS PO
     Route: 048
     Dates: start: 20170801

REACTIONS (2)
  - Dehydration [None]
  - Vomiting [None]

NARRATIVE: CASE EVENT DATE: 20180504
